FAERS Safety Report 19028313 (Version 6)
Quarter: 2021Q3

REPORT INFORMATION
  Report Type: Spontaneous
  Country: DE (occurrence: DE)
  Receive Date: 20210319
  Receipt Date: 20210708
  Transmission Date: 20211014
  Serious: Yes (Hospitalization, Disabling)
  Sender: FDA-Public Use
  Company Number: DE-JNJFOC-20210326589

PATIENT
  Age: 4 Decade
  Sex: Male

DRUGS (3)
  1. XEPLION [Suspect]
     Active Substance: PALIPERIDONE PALMITATE
     Route: 030
     Dates: start: 20151207
  2. XEPLION [Suspect]
     Active Substance: PALIPERIDONE PALMITATE
  3. XEPLION [Suspect]
     Active Substance: PALIPERIDONE PALMITATE
     Indication: SCHIZOPHRENIA
     Route: 030
     Dates: start: 2015

REACTIONS (12)
  - Hospitalisation [Unknown]
  - Rib fracture [Unknown]
  - Pneumonia [Unknown]
  - Thoracic vertebral fracture [Unknown]
  - Drug ineffective [Unknown]
  - Skull fracture [Unknown]
  - Pneumothorax [Unknown]
  - Spinal fracture [Unknown]
  - Skin abrasion [Unknown]
  - Suicide attempt [Unknown]
  - Extradural haematoma [Unknown]
  - Rash maculo-papular [Recovering/Resolving]

NARRATIVE: CASE EVENT DATE: 20150816
